FAERS Safety Report 9679905 (Version 1)
Quarter: 2013Q4

REPORT INFORMATION
  Report Type: Report from Study
  Country: AU (occurrence: AU)
  Receive Date: 20131110
  Receipt Date: 20131110
  Transmission Date: 20140711
  Serious: Yes (Other)
  Sender: FDA-Public Use
  Company Number: AU-ROCHE-1299337

PATIENT
  Age: 63 Year
  Sex: Female

DRUGS (2)
  1. ACTEMRA [Suspect]
     Indication: RHEUMATOID ARTHRITIS
     Dosage: ONGOING
     Route: 042
     Dates: start: 20101111
  2. LIPITOR [Concomitant]
     Indication: BLOOD CHOLESTEROL
     Dosage: ONGOING, DAILY
     Route: 048

REACTIONS (1)
  - Vertigo [Recovered/Resolved]
